FAERS Safety Report 23425643 (Version 1)
Quarter: 2024Q1

REPORT INFORMATION
  Report Type: Report from Study
  Country: US (occurrence: US)
  Receive Date: 20240122
  Receipt Date: 20240122
  Transmission Date: 20240410
  Serious: No
  Sender: FDA-Public Use
  Company Number: US-Accord-374490

PATIENT
  Sex: Female

DRUGS (4)
  1. CLOZAPINE [Suspect]
     Active Substance: CLOZAPINE
     Indication: Product used for unknown indication
  2. LITHIUM [Concomitant]
     Active Substance: LITHIUM
     Dosage: 600 MG TWICE DAILY
  3. PROPRANOLOL [Concomitant]
     Active Substance: PROPRANOLOL HYDROCHLORIDE
     Dosage: 80 MG ONCE DAILY
  4. RISPERDAL [Concomitant]
     Active Substance: RISPERIDONE
     Dosage: 50 MG IM EVERY 14 DAYS
     Route: 030

REACTIONS (5)
  - Sedation [Unknown]
  - Drooling [Unknown]
  - Gait disturbance [Unknown]
  - Eyelid ptosis [Unknown]
  - Wrong product administered [Unknown]
